FAERS Safety Report 20195807 (Version 5)
Quarter: 2022Q2

REPORT INFORMATION
  Report Type: Spontaneous
  Country: PL (occurrence: PL)
  Receive Date: 20211216
  Receipt Date: 20220524
  Transmission Date: 20220721
  Serious: Yes (Hospitalization, Other)
  Sender: FDA-Public Use
  Company Number: PL-SUNFARM-20213389

PATIENT
  Age: 36 Year
  Sex: Male

DRUGS (19)
  1. PANTOPRAZOLE [Suspect]
     Active Substance: PANTOPRAZOLE
     Indication: Cardiac sarcoidosis
     Dosage: 20 MILLIGRAM, QD
     Route: 065
  2. PANTOPRAZOLE [Suspect]
     Active Substance: PANTOPRAZOLE
     Indication: Lung disorder
  3. METHYLPREDNISOLONE [Suspect]
     Active Substance: METHYLPREDNISOLONE
     Indication: Cardiac sarcoidosis
     Dosage: GRADUAL REDUCTION OF THE DOSE
  4. METHYLPREDNISOLONE [Suspect]
     Active Substance: METHYLPREDNISOLONE
     Indication: Adrenocortical steroid therapy
     Dosage: UNK
  5. METHYLPREDNISOLONE [Suspect]
     Active Substance: METHYLPREDNISOLONE
     Indication: Lung disorder
     Dosage: UNK
  6. METHYLPREDNISOLONE [Suspect]
     Active Substance: METHYLPREDNISOLONE
     Indication: Sarcoidosis
     Dosage: UNK
  7. METHYLPREDNISOLONE [Suspect]
     Active Substance: METHYLPREDNISOLONE
     Indication: Pulmonary function test decreased
     Dosage: UNK
  8. METHYLPREDNISOLONE [Suspect]
     Active Substance: METHYLPREDNISOLONE
     Dosage: 24 MILLIGRAM, QD
     Route: 065
  9. METHYLPREDNISOLONE [Suspect]
     Active Substance: METHYLPREDNISOLONE
     Dosage: 32 MILLIGRAM, QD
     Route: 065
  10. METHYLPREDNISOLONE [Suspect]
     Active Substance: METHYLPREDNISOLONE
     Dosage: 28 MILLIGRAM, QD
     Route: 065
  11. METHYLPREDNISOLONE [Suspect]
     Active Substance: METHYLPREDNISOLONE
     Dosage: UNK, QD, (GRADUALLY REDUCE THE DOSE TO 8 MG / DAY)
     Route: 065
  12. BECLOMETHASONE\FENOTEROL [Suspect]
     Active Substance: BECLOMETHASONE\FENOTEROL
     Indication: Cardiac sarcoidosis
     Dosage: BECLOMETHASONE (100 ?G) WITH FORMOTEROL (6 ?G)
  13. BECLOMETHASONE\FENOTEROL [Suspect]
     Active Substance: BECLOMETHASONE\FENOTEROL
     Indication: Lung disorder
     Dosage: UNK, 100/6 MCG
     Route: 048
  14. BECLOMETHASONE\FENOTEROL [Suspect]
     Active Substance: BECLOMETHASONE\FENOTEROL
     Dosage: UNK
     Route: 055
  15. BISOPROLOL [Suspect]
     Active Substance: BISOPROLOL
     Indication: Cardiac sarcoidosis
     Dosage: 2.5 MILLIGRAM, QD
     Route: 048
  16. BISOPROLOL [Suspect]
     Active Substance: BISOPROLOL
     Indication: Lung disorder
     Dosage: 10 MILLIGRAM, QD
  17. BISOPROLOL [Suspect]
     Active Substance: BISOPROLOL
     Indication: Ventricular arrhythmia
     Dosage: UNK
     Route: 065
  18. BECLOMETHASONE DIPROPIONATE [Suspect]
     Active Substance: BECLOMETHASONE DIPROPIONATE
     Indication: Product used for unknown indication
     Dosage: 100 MICROGRAM, (NASAL)
     Route: 045
  19. FORMOTEROL [Suspect]
     Active Substance: FORMOTEROL
     Indication: Product used for unknown indication
     Dosage: 6 MICROGRAM
     Route: 065

REACTIONS (6)
  - Cushing^s syndrome [Unknown]
  - Blood creatinine increased [Unknown]
  - Therapeutic response decreased [Unknown]
  - Fibrin D dimer increased [Unknown]
  - Drug ineffective [Unknown]
  - Off label use [Unknown]
